FAERS Safety Report 5162853-1 (Version None)
Quarter: 2006Q4

REPORT INFORMATION
  Report Type: 
  Country: None (occurrence: None)
  Receive Date: 20061201
  Receipt Date: 20020624
  Transmission Date: 20070319
  Serious: Yes (Hospitalization)
  Sender: FDA-Public Use
  Company Number: FR-GLAXOSMITHKLINE-B0271901B

PATIENT
  Sex: Female
  Weight: 2.6 kg

DRUGS (8)
  1. RETROVIR [Suspect]
     Indication: ANTIVIRAL PROPHYLAXIS
     Route: 048
     Dates: start: 19990720
  2. RETROVIR [Suspect]
     Indication: HIV INFECTION
     Route: 048
     Dates: start: 19990501
  3. RETROVIR [Suspect]
     Route: 042
     Dates: start: 19990720, end: 19990720
  4. IRON [Concomitant]
     Route: 048
  5. VITAMINS [Concomitant]
     Route: 048
  6. JOSACINE [Concomitant]
     Route: 048
  7. SOLUPRED [Concomitant]
     Route: 048
  8. DAFALGAN [Concomitant]
     Route: 065

REACTIONS (10)
  - ALANINE AMINOTRANSFERASE INCREASED [None]
  - ANAEMIA [None]
  - BLOOD KETONE BODY INCREASED [None]
  - BLOOD LACTIC ACID INCREASED [None]
  - BLOOD PYRUVIC ACID DECREASED [None]
  - LABORATORY TEST ABNORMAL [None]
  - METABOLIC DISORDER [None]
  - METABOLIC FUNCTION TEST ABNORMAL [None]
  - NEUTROPENIA [None]
  - THROMBOCYTHAEMIA [None]
